FAERS Safety Report 11099634 (Version 1)
Quarter: 2015Q2

REPORT INFORMATION
  Report Type: Spontaneous
  Country: US (occurrence: US)
  Receive Date: 20150508
  Receipt Date: 20150508
  Transmission Date: 20150821
  Serious: Yes (Hospitalization)
  Sender: FDA-Public Use
  Company Number: US-MYLANLABS-2015M1013912

PATIENT

DRUGS (2)
  1. ASHWAGANDHA /01660201/ [Suspect]
     Active Substance: HERBALS
     Indication: PAIN
     Dosage: UNK
  2. CLOZAPINE TABLETS, USP [Interacting]
     Active Substance: CLOZAPINE
     Indication: SCHIZOAFFECTIVE DISORDER
     Dosage: 100 MG, HS
     Route: 048

REACTIONS (5)
  - Rhabdomyolysis [Recovering/Resolving]
  - Delirium [Recovering/Resolving]
  - Pneumonia [Recovering/Resolving]
  - Catatonia [Recovering/Resolving]
  - Drug interaction [Recovering/Resolving]

NARRATIVE: CASE EVENT DATE: 20150423
